FAERS Safety Report 5485133-3 (Version None)
Quarter: 2007Q4

REPORT INFORMATION
  Report Type: 
  Country: None (occurrence: None)
  Receive Date: 20071010
  Receipt Date: 20071010
  Transmission Date: 20080405
  Serious: No
  Sender: FDA-Public Use
  Company Number: None

PATIENT
  Age: 47 Year
  Sex: Female

DRUGS (1)
  1. TAXOTERE [Suspect]
     Indication: BREAST CANCER
     Dosage: 135MG EVERY 3 WEEKS IV
     Route: 042
     Dates: start: 20071008, end: 20071008

REACTIONS (3)
  - BACK PAIN [None]
  - ERYTHEMA [None]
  - INFUSION RELATED REACTION [None]
